FAERS Safety Report 6268243-2 (Version None)
Quarter: 2009Q3

REPORT INFORMATION
  Report Type: 
  Country: None (occurrence: None)
  Receive Date: 20090715
  Receipt Date: 20070606
  Transmission Date: 20100115
  Serious: Yes (Hospitalization, Other)
  Sender: FDA-Public Use
  Company Number: US-ASTRAZENECA-2006UW11693

PATIENT
  Age: 33 Year
  Sex: Female
  Weight: 121.1 kg

DRUGS (27)
  1. SEROQUEL [Suspect]
     Indication: ANXIETY
     Route: 048
     Dates: start: 20000101, end: 20060101
  2. SEROQUEL [Suspect]
     Indication: DEPRESSION
     Route: 048
     Dates: start: 20000101, end: 20060101
  3. SEROQUEL [Suspect]
     Indication: SCHIZOPHRENIA
     Route: 048
     Dates: start: 20000101, end: 20060101
  4. SEROQUEL [Suspect]
     Dosage: 50 - 300 MG
     Route: 048
     Dates: start: 20011211
  5. SEROQUEL [Suspect]
     Dosage: 50 - 300 MG
     Route: 048
     Dates: start: 20011211
  6. SEROQUEL [Suspect]
     Dosage: 50 - 300 MG
     Route: 048
     Dates: start: 20011211
  7. RISPERDAL [Suspect]
     Dates: start: 20020101, end: 20060101
  8. ABILIFY [Concomitant]
  9. CLOZARIL [Concomitant]
     Dates: start: 20040101, end: 20060101
  10. GEODON [Concomitant]
  11. ZYPREXA [Concomitant]
     Dates: start: 20040101, end: 20050101
  12. PROZAC [Concomitant]
     Route: 048
     Dates: start: 20011211
  13. TEMAZEPAM [Concomitant]
     Route: 048
     Dates: start: 20011211
  14. LITHIUM [Concomitant]
     Route: 048
     Dates: start: 20011211
  15. CLONAZEPAM [Concomitant]
     Route: 048
     Dates: start: 20011211
  16. PROTONICS [Concomitant]
     Indication: GASTROOESOPHAGEAL REFLUX DISEASE
     Route: 048
     Dates: start: 20011211
  17. PROTONICS [Concomitant]
     Indication: GASTRITIS
     Route: 048
     Dates: start: 20011211
  18. CEPHALEXIN [Concomitant]
     Indication: FOLLICULITIS
     Route: 048
     Dates: start: 20040830
  19. IBUPROFEN [Concomitant]
     Route: 048
     Dates: start: 20040830
  20. ALBUTEROL [Concomitant]
     Dates: start: 20051116
  21. THIORIDAZINE HCL [Concomitant]
     Route: 048
     Dates: start: 20051116
  22. SINGULAIR [Concomitant]
     Route: 048
     Dates: start: 20051116
  23. PEPCID OTC [Concomitant]
     Indication: GASTROOESOPHAGEAL REFLUX DISEASE
     Dosage: TWO TIMES A DAY
     Route: 048
     Dates: start: 20051227
  24. ZANTAC OTC [Concomitant]
     Indication: GASTROOESOPHAGEAL REFLUX DISEASE
     Dosage: TWO TIMES DAY
     Route: 048
     Dates: start: 20051227
  25. ZOCOR [Concomitant]
     Route: 048
     Dates: start: 20031209
  26. DETROL LA [Concomitant]
     Route: 048
     Dates: start: 20070108
  27. LEXAPRO [Concomitant]
     Route: 048
     Dates: start: 20061219

REACTIONS (8)
  - BLOOD GLUCOSE INCREASED [None]
  - DIABETES MELLITUS [None]
  - DIABETES WITH HYPEROSMOLARITY [None]
  - DIABETIC COMA [None]
  - DIABETIC KETOACIDOSIS [None]
  - NEUROLEPTIC MALIGNANT SYNDROME [None]
  - NEUROPATHY PERIPHERAL [None]
  - TYPE 2 DIABETES MELLITUS [None]
